FAERS Safety Report 19854399 (Version 1)
Quarter: 2021Q3

REPORT INFORMATION
  Report Type: Spontaneous
  Country: US (occurrence: US)
  Receive Date: 20210920
  Receipt Date: 20210920
  Transmission Date: 20211014
  Serious: Yes (Hospitalization)
  Sender: FDA-Public Use
  Company Number: US-MICRO LABS LIMITED-ML2021-02272

PATIENT
  Age: 9 Decade
  Sex: Female

DRUGS (6)
  1. DILTIAZEM. [Suspect]
     Active Substance: DILTIAZEM
  2. FUROSEMIDE. [Concomitant]
     Active Substance: FUROSEMIDE
  3. FLECAINIDE ACETATE. [Suspect]
     Active Substance: FLECAINIDE ACETATE
  4. APIXABAN [Concomitant]
     Active Substance: APIXABAN
  5. VERAPAMIL [Suspect]
     Active Substance: VERAPAMIL HYDROCHLORIDE
  6. FLECAINIDE ACETATE. [Suspect]
     Active Substance: FLECAINIDE ACETATE

REACTIONS (2)
  - Drug interaction [Unknown]
  - Toxicity to various agents [Unknown]
